FAERS Safety Report 4291310-X (Version None)
Quarter: 2004Q1

REPORT INFORMATION
  Report Type: 
  Country: None (occurrence: None)
  Receive Date: 20040211
  Receipt Date: 20031208
  Transmission Date: 20041129
  Serious: No
  Sender: FDA-Public Use
  Company Number: US-GLAXOSMITHKLINE-A0442344A

PATIENT
  Age: 53 Year
  Sex: Female

DRUGS (4)
  1. PAXIL [Suspect]
     Indication: MAJOR DEPRESSION
     Dosage: 20MG PER DAY
     Route: 048
     Dates: start: 20031201
  2. EFFEXOR [Concomitant]
  3. NEURONTIN [Concomitant]
  4. CLONAZEPAM [Concomitant]

REACTIONS (4)
  - CRYING [None]
  - DEPRESSION [None]
  - EUPHORIC MOOD [None]
  - NERVOUSNESS [None]
